FAERS Safety Report 5426096-6 (Version None)
Quarter: 2007Q3

REPORT INFORMATION
  Report Type: 
  Country: None (occurrence: None)
  Receive Date: 20070823
  Receipt Date: 20070823
  Transmission Date: 20080115
  Serious: Yes (Life-Threatening, Hospitalization)
  Sender: FDA-Public Use
  Company Number: None

PATIENT
  Age: 84 Year
  Sex: Female
  Weight: 48.9885 kg

DRUGS (4)
  1. CLINDAMYCIN 150 MG PHARMECIA + UPJOHN [Suspect]
     Indication: TOOTH FRACTURE
     Dosage: 150 MG CAPSULE 6 TIMES PER DAY PO
     Route: 048
     Dates: start: 20061120, end: 20061129
  2. CLINDAMYCIN 150 MG PHARMECIA + UPJOHN [Suspect]
     Indication: TOOTH INFECTION
     Dosage: 150 MG CAPSULE 6 TIMES PER DAY PO
     Route: 048
     Dates: start: 20061120, end: 20061129
  3. CLINDAMYCIN 150 MG PHARMECIA + UPJOHN [Suspect]
     Indication: TOOTH FRACTURE
     Dosage: 150 MG CAPSULE 6 TIMES PER DAY PO
     Route: 048
     Dates: start: 20061202, end: 20061211
  4. CLINDAMYCIN 150 MG PHARMECIA + UPJOHN [Suspect]
     Indication: TOOTH INFECTION
     Dosage: 150 MG CAPSULE 6 TIMES PER DAY PO
     Route: 048
     Dates: start: 20061202, end: 20061211

REACTIONS (2)
  - CLOSTRIDIUM DIFFICILE COLITIS [None]
  - EMBOLISM [None]
